FAERS Safety Report 9562436 (Version 1)
Quarter: 2013Q3

REPORT INFORMATION
  Report Type: Spontaneous
  Country: US (occurrence: US)
  Receive Date: 20130927
  Receipt Date: 20130927
  Transmission Date: 20140515
  Serious: Yes (Hospitalization)
  Sender: FDA-Public Use
  Company Number: US-GLAXOSMITHKLINE-A1042972A

PATIENT
  Age: 52 Year
  Sex: Female

DRUGS (1)
  1. VENTOLIN HFA [Suspect]
     Indication: SCLERODERMA
     Dosage: 90MCG UNKNOWN
     Route: 055
     Dates: start: 20130321

REACTIONS (2)
  - Oesophageal dilatation [Unknown]
  - Oesophageal disorder [Unknown]
